FAERS Safety Report 10078691 (Version 1)
Quarter: 2014Q2

REPORT INFORMATION
  Report Type: Spontaneous
  Country: FR (occurrence: None)
  Receive Date: 20140411
  Receipt Date: 20140411
  Transmission Date: 20141212
  Serious: Yes (Hospitalization)
  Sender: FDA-Public Use
  Company Number: 2014P1003145

PATIENT
  Age: 56 Year
  Sex: Female

DRUGS (7)
  1. PLAQUENIL TABLET [Suspect]
     Indication: SOLAR DERMATITIS
     Route: 048
     Dates: start: 20130611, end: 20130614
  2. BIPROFENID [Suspect]
     Indication: HEADACHE
     Route: 048
     Dates: start: 20130607, end: 20130614
  3. AERIUS [Suspect]
     Indication: SEASONAL ALLERGY
     Dosage: 5 MG QD.
     Dates: start: 20130612, end: 20130619
  4. FORCAPIL [Suspect]
     Indication: DIFFUSE ALOPECIA
     Route: 048
     Dates: start: 201303, end: 20130614
  5. OESTROGEL [Concomitant]
  6. PROGESTERONE [Concomitant]
  7. SYMBICORT [Concomitant]

REACTIONS (11)
  - Pruritus [None]
  - Burning sensation [None]
  - Drug ineffective [None]
  - Insomnia [None]
  - Lymphadenopathy [None]
  - Systemic inflammatory response syndrome [None]
  - Aspartate aminotransferase increased [None]
  - Alanine aminotransferase increased [None]
  - Dermatitis psoriasiform [None]
  - Toxic skin eruption [None]
  - Drug reaction with eosinophilia and systemic symptoms [None]
